FAERS Safety Report 9934649 (Version 5)
Quarter: 2014Q2

REPORT INFORMATION
  Report Type: Spontaneous
  Country: FR (occurrence: FR)
  Receive Date: 20140228
  Receipt Date: 20140529
  Transmission Date: 20141212
  Serious: Yes (Other)
  Sender: FDA-Public Use
  Company Number: FR-SA-2014SA023343

PATIENT
  Age: 43 Year
  Sex: Female
  Weight: 120 kg

DRUGS (1)
  1. FABRAZYME [Suspect]
     Indication: FABRY^S DISEASE
     Route: 042
     Dates: start: 20090925

REACTIONS (2)
  - Sudden hearing loss [Not Recovered/Not Resolved]
  - Drug ineffective [Unknown]
